FAERS Safety Report 21001567 (Version 1)
Quarter: 2022Q2

REPORT INFORMATION
  Report Type: Spontaneous
  Country: US (occurrence: US)
  Receive Date: 20220624
  Receipt Date: 20220624
  Transmission Date: 20220720
  Serious: No
  Sender: FDA-Public Use
  Company Number: US-BioHaven Pharmaceuticals-2022BHV000927

PATIENT
  Age: 73 Year
  Sex: Female
  Weight: 54.480 kg

DRUGS (10)
  1. NURTEC ODT [Suspect]
     Active Substance: RIMEGEPANT SULFATE
     Indication: Migraine
     Dosage: 1 TABLET ONCE/TWICE PER WEEK OR EVERY OTHER DAY. NO CLARIFYING DETAILS PROVIDED.
     Route: 065
     Dates: start: 20220331
  2. NURTEC ODT [Suspect]
     Active Substance: RIMEGEPANT SULFATE
     Indication: Headache
     Dosage: 1 TABLET ONCE/TWICE PER WEEK OR EVERY OTHER DAY. NO CLARIFYING DETAILS PROVIDED.
     Route: 065
     Dates: start: 20220331
  3. NURTEC ODT [Suspect]
     Active Substance: RIMEGEPANT SULFATE
     Indication: Therapy change
  4. AIMOVIG [Concomitant]
     Active Substance: ERENUMAB-AOOE
     Indication: Migraine
     Dosage: DOSE AND FREQUENCY NOT PROVIDED.
  5. AIMOVIG [Concomitant]
     Active Substance: ERENUMAB-AOOE
     Indication: Headache
  6. METOCLOPRAMIDE [Concomitant]
     Active Substance: METOCLOPRAMIDE
     Indication: Product used for unknown indication
     Dosage: DOSE AND FREQUENCY NOT PROVIDED
     Route: 065
  7. NEURONTIN [Concomitant]
     Active Substance: GABAPENTIN
     Indication: Product used for unknown indication
     Dosage: DOSE AND FREQUENCY NOT PROVIDED
     Route: 065
  8. BOTOX [Concomitant]
     Active Substance: ONABOTULINUMTOXINA
     Indication: Migraine
     Dosage: PATIENT FELT THAT BOTOX WAS DOING THE JOB, SHE HAS BEEN TAKING IT SINCE IT CAME OUT. NO ADDITIONAL I
  9. BOTOX [Concomitant]
     Active Substance: ONABOTULINUMTOXINA
     Indication: Headache
  10. COVID SHOT [Concomitant]
     Indication: COVID-19
     Dosage: GOT THREE SHOTS AND FOURTH ONE SCHEDULED.

REACTIONS (2)
  - Drug ineffective [Recovered/Resolved]
  - Therapeutic response delayed [Unknown]
